FAERS Safety Report 13909036 (Version 1)
Quarter: 2017Q3

REPORT INFORMATION
  Report Type: Spontaneous
  Country: US (occurrence: US)
  Receive Date: 20170828
  Receipt Date: 20170828
  Transmission Date: 20171127
  Serious: No
  Sender: FDA-Public Use
  Company Number: US-ENDO PHARMACEUTICALS INC-2016-005198

PATIENT
  Sex: Female
  Weight: 47.17 kg

DRUGS (11)
  1. TURMERIC                           /01079602/ [Concomitant]
     Active Substance: HERBALS\TURMERIC
     Indication: PAIN
     Dosage: UNK, OD
  2. POTASSIUM GLUCONATE [Concomitant]
     Active Substance: POTASSIUM GLUCONATE
     Indication: BLOOD POTASSIUM DECREASED
     Dosage: 595 MG, OD
     Route: 065
  3. EFFEXOR [Concomitant]
     Active Substance: VENLAFAXINE HYDROCHLORIDE
     Indication: DEPRESSION
     Dosage: 75 MG, OD
     Route: 048
  4. METOPROLOL. [Concomitant]
     Active Substance: METOPROLOL
     Indication: HYPERTENSION
     Dosage: 25 MG, BID
     Route: 065
  5. PREDNISONE TABLETS 5MG [Suspect]
     Active Substance: PREDNISONE
     Indication: INFECTION PROPHYLAXIS
     Dosage: 1 DF, OD
     Route: 065
     Dates: start: 2000
  6. CALCIUM [Concomitant]
     Active Substance: CALCIUM
     Indication: BLOOD CALCIUM DECREASED
     Dosage: 600 MG, OD
     Route: 065
     Dates: start: 2000
  7. PREVACID [Concomitant]
     Active Substance: LANSOPRAZOLE
     Indication: EROSIVE OESOPHAGITIS
     Dosage: 1 DF, OD
     Route: 065
  8. FIBERCON [Concomitant]
     Active Substance: CALCIUM POLYCARBOPHIL
     Indication: DIARRHOEA
     Dosage: 2 DF, DAILY
     Route: 065
  9. SIROLIMUS. [Concomitant]
     Active Substance: SIROLIMUS
     Indication: LIVER TRANSPLANT
     Dosage: 1 DF, OD
     Route: 065
     Dates: start: 2000
  10. VITAMIN D3 [Concomitant]
     Active Substance: CHOLECALCIFEROL
     Indication: SUPPLEMENTATION THERAPY
     Dosage: 1000 UNITS, OD
     Route: 065
  11. HYDROCHLOROTHIAZIDE. [Concomitant]
     Active Substance: HYDROCHLOROTHIAZIDE
     Indication: PERIPHERAL SWELLING
     Dosage: 1 DF, OD
     Route: 048

REACTIONS (3)
  - Weight increased [Unknown]
  - Bruxism [Unknown]
  - Pain in jaw [Unknown]
